FAERS Safety Report 4357314-3 (Version None)
Quarter: 2004Q2

REPORT INFORMATION
  Report Type: 
  Country: None (occurrence: None)
  Receive Date: 20040507
  Receipt Date: 20040419
  Transmission Date: 20050107
  Serious: Yes (Other)
  Sender: FDA-Public Use
  Company Number: USA040465225

PATIENT
  Age: 56 Year
  Sex: Female
  Weight: 86 kg

DRUGS (8)
  1. HUMULIN N [Suspect]
     Indication: DIABETES MELLITUS
     Dosage: 55 U DAY
     Dates: start: 19820101
  2. HUMULIN R [Suspect]
     Indication: DIABETES MELLITUS
     Dosage: 23 U DAY
     Dates: start: 19820101
  3. PROZAC [Concomitant]
  4. NIASPAN [Concomitant]
  5. ZETIA [Concomitant]
  6. ALTACE [Concomitant]
  7. PREVACID [Concomitant]
  8. MERCAPTOPURINE [Concomitant]

REACTIONS (6)
  - BLOOD CHOLESTEROL INCREASED [None]
  - BURNING SENSATION [None]
  - COLON OPERATION [None]
  - ERYTHEMA [None]
  - PHARMACEUTICAL PRODUCT COMPLAINT [None]
  - SWELLING FACE [None]
